FAERS Safety Report 7678018-5 (Version None)
Quarter: 2011Q3

REPORT INFORMATION
  Report Type: 
  Country: None (occurrence: None)
  Receive Date: 20110811
  Receipt Date: 20110801
  Transmission Date: 20111222
  Serious: Yes (Death)
  Sender: FDA-Public Use
  Company Number: JP-GLAXOSMITHKLINE-B0715034A

PATIENT
  Sex: Male
  Weight: 8.5 kg

DRUGS (14)
  1. ALKERAN [Suspect]
     Indication: CORD BLOOD TRANSPLANT THERAPY
     Dosage: 90MGM2 PER DAY
     Route: 042
     Dates: start: 20050619, end: 20050620
  2. OMEPRAZOLE [Concomitant]
     Dosage: 3MG PER DAY
     Route: 042
  3. CYTARABINE [Suspect]
     Indication: CORD BLOOD TRANSPLANT THERAPY
     Dosage: 200MGM2 PER DAY
     Route: 042
     Dates: start: 20050613, end: 20050620
  4. METHOTREXATE [Suspect]
     Dosage: 2MG PER DAY
     Route: 065
     Dates: start: 20050627, end: 20050627
  5. METHOTREXATE [Suspect]
     Indication: IMMUNOSUPPRESSION
     Dosage: 3MG PER DAY
     Route: 065
     Dates: start: 20050622, end: 20050622
  6. FLUCONAZOLE [Concomitant]
     Dosage: 40MG PER DAY
     Route: 042
     Dates: start: 20050611, end: 20050630
  7. FAMOTIDINE [Concomitant]
     Dosage: 14MG PER DAY
     Route: 042
  8. BUSULFAN [Suspect]
     Indication: CORD BLOOD TRANSPLANT THERAPY
     Dosage: 6.7MGK PER DAY
     Route: 048
     Dates: start: 20050613, end: 20050616
  9. FRAGMIN [Suspect]
  10. CARBENIN [Concomitant]
     Dosage: 900MG PER DAY
     Route: 042
     Dates: start: 20050611, end: 20050621
  11. ACYCLOVIR [Concomitant]
     Dosage: 120MG PER DAY
     Route: 042
     Dates: start: 20050613
  12. CYCLOSPORINE [Concomitant]
     Indication: IMMUNOSUPPRESSION
     Dosage: 25MG PER DAY
     Route: 065
     Dates: start: 20050620, end: 20050630
  13. METHOTREXATE [Suspect]
     Dosage: 2MG PER DAY
     Route: 065
     Dates: start: 20050624, end: 20050624
  14. ULINASTATIN [Suspect]

REACTIONS (5)
  - PUTAMEN HAEMORRHAGE [None]
  - PULMONARY HAEMORRHAGE [None]
  - RESPIRATORY FAILURE [None]
  - HAEMORRHAGE INTRACRANIAL [None]
  - SEPSIS [None]
